FAERS Safety Report 10072495 (Version 1)
Quarter: 2014Q2

REPORT INFORMATION
  Report Type: Spontaneous
  Country: US (occurrence: None)
  Receive Date: 20140410
  Receipt Date: 20140410
  Transmission Date: 20141212
  Serious: No
  Sender: FDA-Public Use
  Company Number: None

PATIENT
  Sex: Female

DRUGS (1)
  1. VASELINE [Suspect]

REACTIONS (8)
  - Product counterfeit [None]
  - Skin reaction [None]
  - Lip dry [None]
  - Chapped lips [None]
  - Lip exfoliation [None]
  - Lip swelling [None]
  - Product quality issue [None]
  - Product tampering [None]
